FAERS Safety Report 8116392-6 (Version None)
Quarter: 2012Q1

REPORT INFORMATION
  Report Type: 
  Country: None (occurrence: None)
  Receive Date: 20120206
  Receipt Date: 20120201
  Transmission Date: 20120608
  Serious: Yes (Other)
  Sender: FDA-Public Use
  Company Number: DE-GLAXOSMITHKLINE-D0070995A

PATIENT
  Sex: Female

DRUGS (1)
  1. LAMICTAL [Suspect]
     Indication: GRAND MAL CONVULSION
     Dosage: 100MG PER DAY
     Route: 048
     Dates: start: 20080101

REACTIONS (1)
  - LIPOSARCOMA [None]
